FAERS Safety Report 18571456 (Version 1)
Quarter: 2020Q4

REPORT INFORMATION
  Report Type: Spontaneous
  Country: US (occurrence: US)
  Receive Date: 20201202
  Receipt Date: 20201202
  Transmission Date: 20210114
  Serious: Yes (Other)
  Sender: FDA-Public Use
  Company Number: US-ASTRAZENECA-2020SF57980

PATIENT
  Age: 28363 Day
  Sex: Female
  Weight: 77.1 kg

DRUGS (2)
  1. BYETTA [Suspect]
     Active Substance: EXENATIDE
     Indication: TYPE 2 DIABETES MELLITUS
     Route: 065
  2. METFORMIN HCL [Concomitant]
     Active Substance: METFORMIN HYDROCHLORIDE

REACTIONS (6)
  - Nasopharyngitis [Unknown]
  - Weight decreased [Not Recovered/Not Resolved]
  - Breast cancer [Unknown]
  - Incorrect dose administered [Unknown]
  - Product use issue [Unknown]
  - Feeling jittery [Recovered/Resolved]

NARRATIVE: CASE EVENT DATE: 2012
